FAERS Safety Report 5273377-5 (Version None)
Quarter: 2007Q1

REPORT INFORMATION
  Report Type: 
  Country: None (occurrence: None)
  Receive Date: 20070322
  Receipt Date: 20070312
  Transmission Date: 20070707
  Serious: Yes (Life-Threatening)
  Sender: FDA-Public Use
  Company Number: FR-ELI_LILLY_AND_COMPANY-FR200703002473

PATIENT
  Sex: Female

DRUGS (5)
  1. PROZAC [Suspect]
     Dosage: 20 MG, DAILY (1/D)
     Route: 064
     Dates: end: 20070115
  2. LARGACTIL [Concomitant]
     Dosage: UNK, UNK
     Route: 064
     Dates: end: 20070115
  3. ATARAX [Concomitant]
     Route: 064
     Dates: end: 20070115
  4. LOXEN [Concomitant]
     Route: 064
     Dates: end: 20070115
  5. TRANDATE [Concomitant]
     Route: 064
     Dates: end: 20070115

REACTIONS (4)
  - BRADYCARDIA NEONATAL [None]
  - DRUG EXPOSURE DURING PREGNANCY [None]
  - HYPOTONIA NEONATAL [None]
  - NEONATAL RESPIRATORY DISTRESS SYNDROME [None]
